FAERS Safety Report 9704334 (Version 1)
Quarter: 2013Q4

REPORT INFORMATION
  Report Type: Spontaneous
  Country: US (occurrence: None)
  Receive Date: 20131121
  Receipt Date: 20131121
  Transmission Date: 20140711
  Serious: Yes (Hospitalization)
  Sender: FDA-Public Use
  Company Number: None

PATIENT
  Age: 68 Year
  Sex: Female
  Weight: 61.4 kg

DRUGS (7)
  1. EPINEPHRINE [Suspect]
     Indication: BLOOD PRESSURE
     Route: 042
     Dates: start: 20110920, end: 20110920
  2. CEFAZOLIN [Concomitant]
  3. CHLORHEXIDINE [Concomitant]
  4. METHYLPREDNISOLONE [Concomitant]
  5. MAGNESIUM SULFATE [Concomitant]
  6. MYCOPHENOLATE [Concomitant]
  7. PHYTONADIONE [Concomitant]

REACTIONS (2)
  - Device malfunction [None]
  - Blood pressure increased [None]
